FAERS Safety Report 7276609-7 (Version None)
Quarter: 2011Q1

REPORT INFORMATION
  Report Type: 
  Country: None (occurrence: None)
  Receive Date: 20110204
  Receipt Date: 20101217
  Transmission Date: 20110831
  Serious: Yes (Hospitalization, Other)
  Sender: FDA-Public Use
  Company Number: US-BAYER-201016988NA

PATIENT
  Sex: Female
  Weight: 86.168 kg

DRUGS (20)
  1. CYCLOBENZAPRINE [Concomitant]
     Indication: MULTIPLE SCLEROSIS
     Dosage: 10 MG, TID
     Dates: start: 20010101
  2. LEVAQUIN [Concomitant]
     Dosage: UNK
     Dates: start: 20050101
  3. YAZ [Suspect]
     Indication: PRODUCT USED FOR UNKNOWN INDICATION
     Dosage: UNK
     Route: 048
     Dates: start: 20071101, end: 20080101
  4. YASMIN [Suspect]
     Indication: CONTRACEPTION
     Dosage: UNK
     Route: 048
     Dates: start: 20050131, end: 20080120
  5. MOTRIN [Concomitant]
     Dosage: UNK
     Dates: start: 20030101
  6. AVONEX [Concomitant]
     Indication: MULTIPLE SCLEROSIS
     Dosage: UNK
     Dates: start: 20080101
  7. VITAMIN B12 NOS [Concomitant]
     Indication: MULTIPLE SCLEROSIS
     Dosage: 1000 MG, QD
     Dates: start: 20030101
  8. CIPROFLOXACIN [Concomitant]
     Dosage: UNK
     Dates: start: 20050101
  9. PROPOXYPHENE NAPSYLATE W/ ACETAMINOPHEN [Concomitant]
     Dosage: UNK
     Dates: start: 20050101
  10. ZANTAC [Concomitant]
     Dosage: UNK
     Dates: start: 20050101
  11. CALCIUM [CALCIUM] [Concomitant]
     Dosage: UNK
     Dates: start: 20050101
  12. YASMIN [Suspect]
     Indication: PREMENSTRUAL SYNDROME
  13. ACTONEL [Concomitant]
     Dosage: UNK
     Dates: start: 20050101
  14. ANTIBIOTICS [Concomitant]
  15. FOSAMAX [Concomitant]
     Indication: OSTEOPOROSIS
     Dosage: UNK
     Dates: start: 20090101
  16. RANITIDINE [Concomitant]
     Dosage: UNK
     Dates: start: 20050101
  17. FLEXERIL [Concomitant]
     Dosage: UNK
     Dates: start: 20050101
  18. YASMIN [Suspect]
     Indication: MENSTRUATION IRREGULAR
  19. UNCODEABLE ^UNCLASSIFIABLE^ [Concomitant]
     Indication: MIGRAINE
     Dosage: UNK
     Dates: start: 20000101
  20. ACETAMINOPHEN AND HYDROCODONE BITARTRATE [Concomitant]
     Dosage: UNK
     Dates: start: 20050101

REACTIONS (7)
  - ABDOMINAL PAIN [None]
  - DEEP VEIN THROMBOSIS [None]
  - CHOLECYSTITIS CHRONIC [None]
  - ABDOMINAL PAIN UPPER [None]
  - DYSPEPSIA [None]
  - PAIN IN EXTREMITY [None]
  - BILIARY DYSKINESIA [None]
